FAERS Safety Report 12801074 (Version 4)
Quarter: 2016Q4

REPORT INFORMATION
  Report Type: Spontaneous
  Country: US (occurrence: US)
  Receive Date: 20161003
  Receipt Date: 20161021
  Transmission Date: 20170207
  Serious: Yes (Hospitalization)
  Sender: FDA-Public Use
  Company Number: US-ACTELION-A-NJ2016-142972

PATIENT
  Age: 48 Year
  Sex: Female

DRUGS (5)
  1. TRACLEER [Suspect]
     Active Substance: BOSENTAN
     Indication: PULMONARY ARTERIAL HYPERTENSION
     Dosage: 125 MG, BID
     Route: 048
     Dates: start: 20160808
  2. REMODULIN [Concomitant]
     Active Substance: TREPROSTINIL
     Dosage: UNK
     Route: 058
     Dates: end: 201610
  3. COUMADIN [Concomitant]
     Active Substance: WARFARIN SODIUM
  4. ADCIRCA [Concomitant]
     Active Substance: TADALAFIL
  5. ORENITRAM [Concomitant]
     Active Substance: TREPROSTINIL
     Dosage: 20 MG, Q8HRS
     Dates: start: 201610

REACTIONS (6)
  - Dyspnoea exertional [Unknown]
  - Hyperhidrosis [Unknown]
  - Catheter site erythema [Unknown]
  - Catheter site nodule [Unknown]
  - Catheter site swelling [Unknown]
  - Pneumonia [Unknown]
